FAERS Safety Report 23258074 (Version 2)
Quarter: 2024Q2

REPORT INFORMATION
  Report Type: Spontaneous
  Country: GB (occurrence: GB)
  Receive Date: 20231204
  Receipt Date: 20240508
  Transmission Date: 20240715
  Serious: Yes (Hospitalization, Other)
  Sender: FDA-Public Use
  Company Number: GB-SANOFI US-2022SA203523

PATIENT
  Age: 20 Year
  Sex: Male
  Weight: 78 kg

DRUGS (1)
  1. DULCOLAX STOOL SOFTENER [Suspect]
     Active Substance: DOCUSATE SODIUM
     Indication: Product used for unknown indication

REACTIONS (16)
  - SARS-CoV-2 test negative [Unknown]
  - Chills [Unknown]
  - Malaise [Unknown]
  - Neutropenia [Unknown]
  - Vomiting [Unknown]
  - Pyrexia [Unknown]
  - Diarrhoea [Recovering/Resolving]
  - Accident [Unknown]
  - Back pain [Recovered/Resolved]
  - Febrile neutropenia [Recovered/Resolved]
  - Proctalgia [Recovered/Resolved]
  - Body temperature increased [Unknown]
  - Anal inflammation [Unknown]
  - Crohn^s disease [Recovering/Resolving]
  - Haemorrhoids [Unknown]
  - Pain [Unknown]

NARRATIVE: CASE EVENT DATE: 20220203
